FAERS Safety Report 20021353 (Version 20)
Quarter: 2022Q3

REPORT INFORMATION
  Report Type: Report from Study
  Country: CO (occurrence: None)
  Receive Date: 20211101
  Receipt Date: 20220708
  Transmission Date: 20221026
  Serious: Yes (Hospitalization)
  Sender: FDA-Public Use
  Company Number: CO-Eisai Medical Research-EC-2021-102377

PATIENT
  Age: 74 Year
  Sex: Male
  Weight: 73 kg

DRUGS (6)
  1. LENVATINIB [Suspect]
     Active Substance: LENVATINIB
     Indication: Hepatocellular carcinoma
     Route: 048
     Dates: start: 20210906, end: 20211021
  2. PEMBROLIZUMAB [Suspect]
     Active Substance: PEMBROLIZUMAB
     Indication: Hepatocellular carcinoma
     Route: 041
     Dates: start: 20210906, end: 20210906
  3. TAMSULOSIN HYDROCHLORIDE [Concomitant]
     Active Substance: TAMSULOSIN HYDROCHLORIDE
     Dates: start: 201107
  4. VITAMIN D NOS [Concomitant]
     Active Substance: VITAMIN D NOS
     Dates: start: 201507
  5. CALCIUM [Concomitant]
     Active Substance: CALCIUM
     Dates: start: 201507
  6. COLCHICINE [Concomitant]
     Active Substance: COLCHICINE
     Dates: start: 201608

REACTIONS (2)
  - Portal vein thrombosis [Recovered/Resolved with Sequelae]
  - Gastrointestinal haemorrhage [Recovered/Resolved]

NARRATIVE: CASE EVENT DATE: 20211015
